FAERS Safety Report 7375807 (Version 3)
Quarter: 2014Q1

REPORT INFORMATION
  Report Type: Spontaneous
  Country: US (occurrence: US)
  Receive Date: 20100504
  Receipt Date: 20140110
  Transmission Date: 20141002
  Serious: Yes (Hospitalization)
  Sender: FDA-Public Use
  Company Number: US-BAYER-201020804NA

PATIENT
  Age: 24 Year
  Sex: Female
  Weight: 54.42 kg

DRUGS (4)
  1. YAZ [Suspect]
     Dosage: UNK UNK, QD
     Route: 048
     Dates: start: 200408, end: 200807
  2. YASMIN [Suspect]
     Dosage: UNK
     Dates: start: 200408, end: 200807
  3. MS CONTIN [Concomitant]
     Indication: BACK PAIN
     Dosage: UNK
     Dates: start: 2004, end: 2008
  4. TUMS [CALCIUM CARBONATE] [Concomitant]

REACTIONS (4)
  - Cholecystitis chronic [None]
  - Gallbladder cholesterolosis [None]
  - Abdominal pain upper [None]
  - Nausea [None]
